FAERS Safety Report 24354686 (Version 1)
Quarter: 2024Q3

REPORT INFORMATION
  Report Type: Spontaneous
  Country: JP (occurrence: JP)
  Receive Date: 20240923
  Receipt Date: 20240923
  Transmission Date: 20241016
  Serious: Yes (Other)
  Sender: BRACCO
  Company Number: JP-BAYER-2024A133596

PATIENT
  Age: 74 Year
  Sex: Male

DRUGS (2)
  1. IOPAMIRON [Suspect]
     Active Substance: IOPAMIDOL
     Indication: Computerised tomogram
     Dosage: UNK, SINGLE
  2. NICARDIPINE HYDROCHLORIDE [Suspect]
     Active Substance: NICARDIPINE HYDROCHLORIDE
     Route: 041

REACTIONS (3)
  - Vascular stent thrombosis [Recovered/Resolved]
  - Kounis syndrome [Recovering/Resolving]
  - Rash [Recovering/Resolving]
